FAERS Safety Report 4682501-4 (Version None)
Quarter: 2005Q2

REPORT INFORMATION
  Report Type: 
  Country: None (occurrence: None)
  Receive Date: 20050606
  Receipt Date: 20050601
  Transmission Date: 20051028
  Serious: Yes (Disabling)
  Sender: FDA-Public Use
  Company Number: PHBS2005MY07749

PATIENT
  Age: 60 Year
  Sex: Male
  Weight: 80 kg

DRUGS (1)
  1. SANDOSTATIN [Suspect]
     Indication: INSULINOMA
     Dosage: 0.1 MG/H
     Dates: start: 20050323

REACTIONS (4)
  - ARRHYTHMIA [None]
  - BRAIN HYPOXIA [None]
  - CARDIAC ARREST [None]
  - HYPOTENSION [None]
